FAERS Safety Report 18253852 (Version 1)
Quarter: 2020Q3

REPORT INFORMATION
  Report Type: Report from Study
  Country: JO (occurrence: JO)
  Receive Date: 20200910
  Receipt Date: 20200910
  Transmission Date: 20201103
  Serious: Yes (Other)
  Sender: FDA-Public Use
  Company Number: JO-JNJFOC-20191034945

PATIENT
  Age: 14 Year
  Sex: Male
  Weight: 60 kg

DRUGS (1)
  1. REMICADE [Suspect]
     Active Substance: INFLIXIMAB
     Indication: CROHN^S DISEASE
     Route: 042
     Dates: start: 201510, end: 201710

REACTIONS (1)
  - Drug hypersensitivity [Recovered/Resolved]
